FAERS Safety Report 5321583-3 (Version None)
Quarter: 2007Q2

REPORT INFORMATION
  Report Type: 
  Country: None (occurrence: None)
  Receive Date: 20070510
  Receipt Date: 20070502
  Transmission Date: 20071010
  Serious: Yes (Hospitalization)
  Sender: FDA-Public Use
  Company Number: HU-ROCHE-494523

PATIENT
  Age: 23 Year
  Sex: Male

DRUGS (2)
  1. ROACCUTAN [Suspect]
     Indication: ACNE CONGLOBATA
     Route: 048
     Dates: start: 20060801, end: 20060901
  2. ROACCUTAN [Suspect]
     Route: 048

REACTIONS (3)
  - HEPATOMEGALY [None]
  - PYREXIA [None]
  - VIRAL INFECTION [None]
